FAERS Safety Report 7654388-9 (Version None)
Quarter: 2011Q3

REPORT INFORMATION
  Report Type: 
  Country: None (occurrence: None)
  Receive Date: 20110803
  Receipt Date: 20110729
  Transmission Date: 20111222
  Serious: Yes (Hospitalization, Other)
  Sender: FDA-Public Use
  Company Number: CO-PFIZER INC-2011106756

PATIENT
  Age: 67 Year
  Sex: Male

DRUGS (4)
  1. CARDURA [Suspect]
     Indication: BENIGN PROSTATIC HYPERPLASIA
  2. CEFTRIAXONE [Concomitant]
     Dosage: 2 MG, 1X/DAY
  3. DIPIRONE [Concomitant]
  4. CARDURA [Suspect]
     Indication: URINARY RETENTION
     Dosage: 4 MG, 1X/DAY
     Route: 048
     Dates: start: 20110428

REACTIONS (1)
  - KIDNEY INFECTION [None]
